FAERS Safety Report 25033354 (Version 1)
Quarter: 2025Q1

REPORT INFORMATION
  Report Type: Spontaneous
  Country: DE (occurrence: DE)
  Receive Date: 20250303
  Receipt Date: 20250303
  Transmission Date: 20250409
  Serious: Yes (Other)
  Sender: NOVARTIS
  Company Number: DE-002147023-NVSC2025DE034971

PATIENT
  Sex: Female

DRUGS (2)
  1. COSENTYX [Suspect]
     Active Substance: SECUKINUMAB
     Indication: Psoriatic arthropathy
     Route: 065
     Dates: start: 202411
  2. COSENTYX [Suspect]
     Active Substance: SECUKINUMAB
     Indication: Arthritis
     Dosage: 300 MG, QMO
     Route: 065
     Dates: start: 202501

REACTIONS (4)
  - Sacroiliac joint dysfunction [Unknown]
  - Arthritis [Unknown]
  - Myopathy [Unknown]
  - Tendon disorder [Unknown]

NARRATIVE: CASE EVENT DATE: 20250217
